FAERS Safety Report 16126104 (Version 1)
Quarter: 2019Q1

REPORT INFORMATION
  Report Type: Spontaneous
  Country: US (occurrence: US)
  Receive Date: 20190328
  Receipt Date: 20190328
  Transmission Date: 20190418
  Serious: Yes (Other)
  Sender: FDA-Public Use
  Company Number: US-PFIZER INC-2019119645

PATIENT
  Age: 51 Year
  Sex: Female
  Weight: 58.96 kg

DRUGS (1)
  1. ALPRAZOLAM. [Suspect]
     Active Substance: ALPRAZOLAM
     Indication: ANXIETY
     Dosage: 2 MG, TWICE DAILY AS NEEDED
     Dates: start: 2004, end: 20190301

REACTIONS (9)
  - Loss of consciousness [Unknown]
  - Short-bowel syndrome [Not Recovered/Not Resolved]
  - Weight decreased [Unknown]
  - Drug dependence [Unknown]
  - Drug abuse [Unknown]
  - Blood albumin decreased [Unknown]
  - Miosis [Unknown]
  - Road traffic accident [Unknown]
  - Vitamin D decreased [Unknown]

NARRATIVE: CASE EVENT DATE: 2017
